FAERS Safety Report 25139785 (Version 1)
Quarter: 2025Q1

REPORT INFORMATION
  Report Type: Spontaneous
  Country: US (occurrence: US)
  Receive Date: 20250331
  Receipt Date: 20250331
  Transmission Date: 20250409
  Serious: Yes (Hospitalization, Other)
  Sender: ZYDUS PHARM
  Company Number: US-CADILA HEALTHCARE LIMITED-US-ZYDUS-121048

PATIENT

DRUGS (3)
  1. BUPROPION [Suspect]
     Active Substance: BUPROPION
     Indication: Depression
     Route: 065
  2. SERTRALINE [Concomitant]
     Active Substance: SERTRALINE HYDROCHLORIDE
     Indication: Depression
     Route: 065
  3. TRAZODONE [Concomitant]
     Active Substance: TRAZODONE HYDROCHLORIDE
     Indication: Depression
     Route: 065

REACTIONS (12)
  - Unresponsive to stimuli [Unknown]
  - Respiratory acidosis [Unknown]
  - Brain death [Recovering/Resolving]
  - Apnoea [Unknown]
  - Sinus tachycardia [Unknown]
  - Hypotension [Unknown]
  - Coma [Recovered/Resolved]
  - Seizure [Unknown]
  - Respiratory depression [Unknown]
  - Toxicity to various agents [Unknown]
  - Mental status changes [Unknown]
  - Intentional overdose [Unknown]
